FAERS Safety Report 10255577 (Version 2)
Quarter: 2014Q2

REPORT INFORMATION
  Report Type: Spontaneous
  Country: FR (occurrence: FR)
  Receive Date: 20140624
  Receipt Date: 20140624
  Transmission Date: 20141212
  Serious: Yes (Death)
  Sender: FDA-Public Use
  Company Number: FR-SANOFI-AVENTIS-A02200901525

PATIENT
  Age: 70 Year
  Sex: Male

DRUGS (11)
  1. ELOXATINE [Suspect]
     Indication: COLON CANCER METASTATIC
     Dosage: UNIT DOSE: 5 MG/ML
     Route: 041
     Dates: start: 20081104, end: 20081104
  2. PRIMPERAN [Suspect]
     Indication: PREMEDICATION
     Route: 042
     Dates: start: 20081104, end: 20081104
  3. FLUOROURACIL [Suspect]
     Indication: COLON CANCER METASTATIC
     Dosage: UNIT DOSE: 50 MG/ML
     Route: 041
     Dates: start: 20081104, end: 20081105
  4. AVASTIN [Suspect]
     Indication: COLON CANCER METASTATIC
     Dosage: UNIT DOSE: 25 MG/ML
     Route: 041
     Dates: start: 20081106, end: 20081106
  5. ACUPAN [Suspect]
     Indication: PRODUCT USED FOR UNKNOWN INDICATION
     Dosage: UNIT DOSE: 20 MG
     Route: 042
     Dates: start: 20081104
  6. ZOPHREN [Suspect]
     Indication: PREMEDICATION
     Route: 042
     Dates: start: 20081104, end: 20081104
  7. SOLUMEDROL [Suspect]
     Indication: PREMEDICATION
     Route: 042
     Dates: start: 20081104, end: 20081104
  8. LASILIX [Concomitant]
     Route: 065
  9. TAVANIC [Concomitant]
     Route: 065
  10. AUGMENTIN /UNK/ [Concomitant]
     Route: 065
  11. NEXIUM /UNK/ [Concomitant]
     Route: 065

REACTIONS (1)
  - Myocardial infarction [Fatal]
